FAERS Safety Report 7658675-X (Version None)
Quarter: 2011Q3

REPORT INFORMATION
  Report Type: 
  Country: None (occurrence: None)
  Receive Date: 20110805
  Receipt Date: 20110729
  Transmission Date: 20111222
  Serious: Yes (Hospitalization)
  Sender: FDA-Public Use
  Company Number: CN-PFIZER INC-2011177781

PATIENT
  Age: 71 Year

DRUGS (3)
  1. GABAPENTIN [Suspect]
     Indication: OCCIPITAL NEURALGIA
     Dosage: 900 MG/DAY
     Dates: end: 20110724
  2. LYRICA [Suspect]
     Indication: OCCIPITAL NEURALGIA
     Dosage: 75 MG, 1X/DAY
     Route: 048
     Dates: start: 20110725, end: 20110726
  3. GABAPENTIN [Suspect]
     Dosage: 600 MG/DAY
     Dates: start: 20110725

REACTIONS (4)
  - SOMNOLENCE [None]
  - DRUG INEFFECTIVE [None]
  - DYSPHORIA [None]
  - CONFUSIONAL STATE [None]
